FAERS Safety Report 4317327-4 (Version None)
Quarter: 2004Q1

REPORT INFORMATION
  Report Type: 
  Country: None (occurrence: None)
  Receive Date: 20040312
  Receipt Date: 20040301
  Transmission Date: 20041129
  Serious: Yes (Other)
  Sender: FDA-Public Use
  Company Number: FR-JNJFOC-20040201057

PATIENT
  Age: 60 Year
  Sex: Male
  Weight: 80 kg

DRUGS (7)
  1. REMICADE [Suspect]
     Indication: RHEUMATOID ARTHRITIS
     Dosage: SEE IMAGE
     Route: 042
     Dates: start: 20030111, end: 20030124
  2. REMICADE [Suspect]
     Indication: RHEUMATOID ARTHRITIS
     Dosage: SEE IMAGE
     Route: 042
     Dates: start: 20030221
  3. METHOTREXATE [Concomitant]
  4. PREDNISONE [Concomitant]
  5. FOLIC ACID [Concomitant]
  6. OMIX (TAMSULOSIN HYDROCHLORIDE) [Concomitant]
  7. SOTALOL HCL [Concomitant]

REACTIONS (1)
  - PERICARDITIS [None]
